FAERS Safety Report 7374369-2 (Version None)
Quarter: 2011Q1

REPORT INFORMATION
  Report Type: 
  Country: None (occurrence: None)
  Receive Date: 20110325
  Receipt Date: 20110322
  Transmission Date: 20110831
  Serious: Yes (Other)
  Sender: FDA-Public Use
  Company Number: LK-PFIZER INC-2009170730

PATIENT
  Age: 53 Year
  Sex: Female

DRUGS (2)
  1. SERTRALINE HYDROCHLORIDE [Suspect]
     Indication: DEPRESSION
     Dosage: 50 MG, UNK
  2. HERBAL PREPARATION [Interacting]
     Indication: BACK PAIN

REACTIONS (3)
  - DEPRESSION [None]
  - DRUG INTERACTION [None]
  - SUICIDE ATTEMPT [None]
